FAERS Safety Report 16734902 (Version 1)
Quarter: 2019Q3

REPORT INFORMATION
  Report Type: Spontaneous
  Country: DE (occurrence: DE)
  Receive Date: 20190823
  Receipt Date: 20190823
  Transmission Date: 20191005
  Serious: Yes (Hospitalization, Disabling, Other)
  Sender: FDA-Public Use
  Company Number: DE-TORRENT-00015327

PATIENT
  Age: 53 Year
  Sex: Male

DRUGS (1)
  1. SILDENAFIL. [Suspect]
     Active Substance: SILDENAFIL
     Indication: PRODUCT USED FOR UNKNOWN INDICATION

REACTIONS (4)
  - Retinal artery occlusion [Recovered/Resolved]
  - Blindness unilateral [Not Recovered/Not Resolved]
  - Retinal ischaemia [Recovered/Resolved]
  - Macular oedema [Recovered/Resolved]
